FAERS Safety Report 5706105-7 (Version None)
Quarter: 2008Q2

REPORT INFORMATION
  Report Type: 
  Country: None (occurrence: None)
  Receive Date: 20080415
  Receipt Date: 20080403
  Transmission Date: 20081010
  Serious: Yes (Life-Threatening, Hospitalization, Other)
  Sender: FDA-Public Use
  Company Number: GB-PFIZER INC-2008024364

PATIENT
  Sex: Female
  Weight: 103 kg

DRUGS (9)
  1. VORICONAZOLE [Suspect]
     Indication: FUNGAL INFECTION
     Route: 042
     Dates: start: 20080228, end: 20080309
  2. CYCLOSPORINE [Concomitant]
     Route: 042
  3. CALOGEN [Concomitant]
     Route: 048
  4. ALL OTHER THERAPEUTIC PRODUCTS [Concomitant]
     Route: 048
  5. SUCRALFATE [Concomitant]
     Route: 048
  6. NORETHINDRONE ACETATE [Concomitant]
     Route: 048
  7. ACYCLOVIR [Concomitant]
     Route: 042
  8. NYSTATIN [Concomitant]
     Route: 048
  9. LANSOPRAZOLE [Concomitant]
     Route: 048

REACTIONS (1)
  - VENOOCCLUSIVE LIVER DISEASE [None]
